FAERS Safety Report 4954975-2 (Version None)
Quarter: 2006Q1

REPORT INFORMATION
  Report Type: 
  Country: None (occurrence: None)
  Receive Date: 20060327
  Receipt Date: 20060217
  Transmission Date: 20060701
  Serious: Yes (Disabling)
  Sender: FDA-Public Use
  Company Number: DE-SANOFI-SYNTHELABO-A04200600217

PATIENT
  Sex: Female
  Weight: 53 kg

DRUGS (7)
  1. ELOXATIN [Suspect]
     Indication: RECTAL CANCER
     Route: 041
     Dates: start: 20051207, end: 20051208
  2. FLUOROURACIL [Concomitant]
     Indication: RECTAL CANCER
     Route: 041
     Dates: start: 20051207, end: 20051208
  3. FOLINIC ACID [Concomitant]
     Indication: RECTAL CANCER
     Route: 041
     Dates: start: 20051207, end: 20051208
  4. PANTOZOL [Concomitant]
     Indication: GASTRITIS
     Route: 048
  5. SUMMAVIT [Concomitant]
     Indication: DRUG USE FOR UNKNOWN INDICATION
     Dosage: UNK
     Route: 065
  6. ASCORVIT [Concomitant]
     Indication: DRUG USE FOR UNKNOWN INDICATION
     Dosage: UNK
     Route: 048
  7. AVONILUM [Concomitant]
     Indication: DRUG USE FOR UNKNOWN INDICATION
     Dosage: UNK
     Route: 065

REACTIONS (1)
  - DERMATITIS ALLERGIC [None]
